FAERS Safety Report 21279682 (Version 1)
Quarter: 2022Q3

REPORT INFORMATION
  Report Type: Spontaneous
  Country: US (occurrence: None)
  Receive Date: 20220831
  Receipt Date: 20220831
  Transmission Date: 20221026
  Serious: Yes (Other)
  Sender: FDA-Public Use
  Company Number: None

PATIENT
  Age: 78 Year
  Sex: Female
  Weight: 86.2 kg

DRUGS (1)
  1. BEBTELOVIMAB [Suspect]
     Active Substance: BEBTELOVIMAB
     Indication: COVID-19
     Dosage: FREQUENCY : ONCE;?
     Route: 042

REACTIONS (8)
  - Infusion related reaction [None]
  - Dyspnoea [None]
  - Blood pressure immeasurable [None]
  - Agonal respiration [None]
  - Pulse abnormal [None]
  - Visual impairment [None]
  - Productive cough [None]
  - Aura [None]

NARRATIVE: CASE EVENT DATE: 20220722
